FAERS Safety Report 10503956 (Version 2)
Quarter: 2014Q4

REPORT INFORMATION
  Report Type: Spontaneous
  Country: US (occurrence: US)
  Receive Date: 20141008
  Receipt Date: 20141008
  Transmission Date: 20150528
  Serious: No
  Sender: FDA-Public Use
  Company Number: US-BEH-2012031847

PATIENT
  Age: 39 Year
  Sex: Female
  Weight: 145 kg

DRUGS (34)
  1. EPIPEN [Concomitant]
     Active Substance: EPINEPHRINE
     Indication: PREMEDICATION
  2. IBUPROFEN. [Concomitant]
     Active Substance: IBUPROFEN
  3. HEPARIN [Concomitant]
     Active Substance: HEPARIN SODIUM
  4. LISINOPRIL. [Concomitant]
     Active Substance: LISINOPRIL
  5. RESTORIL [Concomitant]
     Active Substance: TEMAZEPAM
  6. MULTIVITAMIN [Concomitant]
     Active Substance: VITAMINS
  7. HYDROCODONE-APAP [Concomitant]
     Active Substance: ACETAMINOPHEN\HYDROCODONE
  8. NORMAL SALINE [Concomitant]
     Active Substance: SODIUM CHLORIDE
  9. NORVASC [Concomitant]
     Active Substance: AMLODIPINE BESYLATE
  10. FLOVENT [Concomitant]
     Active Substance: FLUTICASONE PROPIONATE
  11. ZINC [Concomitant]
     Active Substance: ZINC\ZINC CHLORIDE
  12. VITAMIN D3 [Concomitant]
     Active Substance: CHOLECALCIFEROL
  13. NORETHINDRONE. [Concomitant]
     Active Substance: NORETHINDRONE
  14. SODIUM CHLORIDE. [Concomitant]
     Active Substance: SODIUM CHLORIDE
  15. HYDROCHLOROTHIAZIDE. [Concomitant]
     Active Substance: HYDROCHLOROTHIAZIDE
  16. MAXAIR [Concomitant]
     Active Substance: PIRBUTEROL ACETATE
  17. PRIVIGEN [Suspect]
     Active Substance: HUMAN IMMUNOGLOBULIN G
     Indication: IMMUNODEFICIENCY COMMON VARIABLE
     Dosage: 360 ML PER HOUR MAXIMAL
     Route: 042
     Dates: start: 20120607, end: 20120607
  18. PRIVIGEN [Suspect]
     Active Substance: HUMAN IMMUNOGLOBULIN G
     Route: 058
  19. ACETAMINOPHEN. [Concomitant]
     Active Substance: ACETAMINOPHEN
  20. VITAMIN A [Concomitant]
     Active Substance: VITAMIN A
  21. DIPHENHYDRAMINE [Concomitant]
     Active Substance: DIPHENHYDRAMINE
     Indication: PREMEDICATION
  22. FLONASE [Concomitant]
     Active Substance: FLUTICASONE PROPIONATE
  23. PRIVIGEN [Suspect]
     Active Substance: HUMAN IMMUNOGLOBULIN G
     Dosage: 45 ML PER HR X 30 MIN. IF TOLERATED MAY INCREASE TO 90 ML PER HR X 15 MIN MAX RATE OF 360 ML
     Route: 042
     Dates: start: 20120316, end: 20120316
  24. OXYGEN. [Concomitant]
     Active Substance: OXYGEN
  25. KLONOPIN [Concomitant]
     Active Substance: CLONAZEPAM
  26. SUPER B COMPLEX [Concomitant]
     Active Substance: CYANOCOBALAMIN\DEXPANTHENOL\NIACINAMIDE\PYRIDOXINE HYDROCHLORIDE\RIBOFLAVIN 5^-PHOSPHATE SODIUM\THIAMINE HYDROCHLORIDE\VITAMIN B COMPLEX
  27. ZINC PRODUCTS [Concomitant]
  28. DEXAMETHASONE. [Concomitant]
     Active Substance: DEXAMETHASONE
  29. BUSPIRONE [Concomitant]
     Active Substance: BUSPIRONE HYDROCHLORIDE
  30. OMEPRAZOLE. [Concomitant]
     Active Substance: OMEPRAZOLE
  31. SELENIUM [Concomitant]
     Active Substance: SELENIUM
  32. FLUOXETINE [Concomitant]
     Active Substance: FLUOXETINE\FLUOXETINE HYDROCHLORIDE
  33. PRIVIGEN [Suspect]
     Active Substance: HUMAN IMMUNOGLOBULIN G
     Route: 042
  34. ASPIRIN. [Concomitant]
     Active Substance: ASPIRIN

REACTIONS (16)
  - Nausea [Unknown]
  - Vomiting [Unknown]
  - Musculoskeletal stiffness [Recovered/Resolved]
  - Sinusitis [Unknown]
  - Headache [Recovered/Resolved]
  - Hypertension [Unknown]
  - Nausea [Unknown]
  - Trismus [Unknown]
  - Pain in jaw [Unknown]
  - Nausea [Unknown]
  - Eye infection [Unknown]
  - Rhinitis [Unknown]
  - Headache [Unknown]
  - Ear infection [Unknown]
  - Headache [Recovered/Resolved]
  - Pharyngitis [Unknown]

NARRATIVE: CASE EVENT DATE: 20120316
